FAERS Safety Report 12529777 (Version 2)
Quarter: 2016Q3

REPORT INFORMATION
  Report Type: Spontaneous
  Country: US (occurrence: US)
  Receive Date: 20160706
  Receipt Date: 20160809
  Transmission Date: 20161109
  Serious: No
  Sender: FDA-Public Use
  Company Number: US-BEH-2016057688

PATIENT
  Sex: Female
  Weight: 103 kg

DRUGS (27)
  1. SUMATRIPTAN SUCC [Concomitant]
     Active Substance: SUMATRIPTAN SUCCINATE
  2. QNASL [Concomitant]
     Active Substance: BECLOMETHASONE DIPROPIONATE
     Dosage: HFA AER AD
  3. EPI-PEN AUTOINJECTOR [Concomitant]
  4. PATANOL [Concomitant]
     Active Substance: OLOPATADINE HYDROCHLORIDE
     Dosage: DROPS
  5. PATANOL [Concomitant]
     Active Substance: OLOPATADINE HYDROCHLORIDE
  6. LEVOTHYROXINE. [Concomitant]
     Active Substance: LEVOTHYROXINE
  7. PRIVIGEN [Suspect]
     Active Substance: HUMAN IMMUNOGLOBULIN G
     Indication: IMMUNODEFICIENCY COMMON VARIABLE
     Dosage: EVERY 3-4 WEEKS.
     Route: 042
     Dates: start: 20140715
  8. AUGMENTIN [Concomitant]
     Active Substance: AMOXICILLIN\CLAVULANATE POTASSIUM
     Dosage: 500-125 MG
  9. SUDOGEST [Concomitant]
     Active Substance: PSEUDOEPHEDRINE HYDROCHLORIDE
  10. VITAMIN D3 [Concomitant]
     Active Substance: CHOLECALCIFEROL
     Dosage: SOFTGEL
  11. SULINDAC. [Concomitant]
     Active Substance: SULINDAC
  12. SPIRONOLACTONE. [Concomitant]
     Active Substance: SPIRONOLACTONE
  13. LISINOPRIL. [Concomitant]
     Active Substance: LISINOPRIL
  14. OMEPRAZOLE. [Concomitant]
     Active Substance: OMEPRAZOLE
  15. VITAMIN D [Concomitant]
     Active Substance: CHOLECALCIFEROL
     Dosage: SOFTGEL
  16. CYMBALTA [Concomitant]
     Active Substance: DULOXETINE HYDROCHLORIDE
  17. DIPHENHYDRAMINE. [Concomitant]
     Active Substance: DIPHENHYDRAMINE
  18. SODIUM CHLORIDE. [Concomitant]
     Active Substance: SODIUM CHLORIDE
  19. SOLU-MEDROL [Concomitant]
     Active Substance: METHYLPREDNISOLONE SODIUM SUCCINATE
     Dosage: 40 MG/ML VIAL
  20. METFORMIN HCL [Concomitant]
     Active Substance: METFORMIN HYDROCHLORIDE
  21. NORMAL SALINE [Concomitant]
     Active Substance: SODIUM CHLORIDE
  22. ZYRTEC [Concomitant]
     Active Substance: CETIRIZINE HYDROCHLORIDE
  23. BIOTIN [Concomitant]
     Active Substance: BIOTIN
  24. MAGNESIUM [Concomitant]
     Active Substance: MAGNESIUM
  25. IMITREX [Concomitant]
     Active Substance: SUMATRIPTAN SUCCINATE
  26. OMEGA 3 FISH OIL [Concomitant]
     Active Substance: FISH OIL\OMEGA-3 FATTY ACIDS
     Dosage: SFTGL
  27. GLUCOSAMINE [Concomitant]
     Active Substance: GLUCOSAMINE

REACTIONS (2)
  - Bronchitis [Unknown]
  - Sinusitis [Unknown]
